FAERS Safety Report 16890366 (Version 1)
Quarter: 2020Q3

REPORT INFORMATION
  Report Type: Spontaneous
  Country: US (occurrence: US)
  Receive Date: 20190812
  Receipt Date: 20190812
  Transmission Date: 20201104
  Serious: No
  Sender: FDA-Public Use
  Company Number: None

PATIENT

DRUGS (3)
  1. PHENYLEPHRINE [Suspect]
     Active Substance: PHENYLEPHRINE HYDROCHLORIDE
  2. EPINEPHRINE. [Suspect]
     Active Substance: EPINEPHRINE
  3. EPHEDRINE. [Suspect]
     Active Substance: EPHEDRINE

REACTIONS (1)
  - Product label confusion [None]
